FAERS Safety Report 10278705 (Version 1)
Quarter: 2014Q3

REPORT INFORMATION
  Report Type: Report from Study
  Country: US (occurrence: US)
  Receive Date: 20140704
  Receipt Date: 20140704
  Transmission Date: 20150326
  Serious: Yes (Death, Other)
  Sender: FDA-Public Use
  Company Number: US-BRISTOL-MYERS SQUIBB COMPANY-21085626

PATIENT
  Age: 63 Year
  Sex: Male

DRUGS (1)
  1. BELATACEPT [Suspect]
     Active Substance: BELATACEPT

REACTIONS (6)
  - Renal failure acute [Unknown]
  - Cardiogenic shock [Fatal]
  - Acute myocardial infarction [Fatal]
  - Atrial fibrillation [Fatal]
  - Graft loss [Unknown]
  - Septic shock [Fatal]
